FAERS Safety Report 4468069-6 (Version None)
Quarter: 2004Q4

REPORT INFORMATION
  Report Type: 
  Country: None (occurrence: None)
  Receive Date: 20041004
  Receipt Date: 20040922
  Transmission Date: 20050328
  Serious: Yes (Other)
  Sender: FDA-Public Use
  Company Number: JP-2004-031318

PATIENT
  Age: 38 Year
  Sex: Female

DRUGS (2)
  1. BETAFERON(INTERFERON BETA - 1B) INJECTION, 250MCG [Suspect]
     Indication: MULTIPLE SCLEROSIS
     Dosage: 8 MIU, EVERY 2D, SUBCUTANEOUS
     Route: 058
     Dates: start: 20020731, end: 20030211
  2. METHYCOBAL (MECOBALAMIN) [Concomitant]

REACTIONS (3)
  - BRONCHITIS [None]
  - INTERSTITIAL LUNG DISEASE [None]
  - RHINORRHOEA [None]
